APPROVED DRUG PRODUCT: YUTOPAR
Active Ingredient: RITODRINE HYDROCHLORIDE
Strength: 10MG/ML
Dosage Form/Route: INJECTABLE;INJECTION
Application: N018580 | Product #001
Applicant: ASTRAZENECA LP
Approved: Approved Prior to Jan 1, 1982 | RLD: No | RS: No | Type: DISCN